FAERS Safety Report 21175015 (Version 2)
Quarter: 2022Q3

REPORT INFORMATION
  Report Type: Spontaneous
  Country: LT (occurrence: LT)
  Receive Date: 20220805
  Receipt Date: 20220826
  Transmission Date: 20221026
  Serious: Yes (Hospitalization)
  Sender: FDA-Public Use
  Company Number: LT-Orion Corporation ORION PHARMA-QUET2022-0013

PATIENT
  Age: 57 Year
  Sex: Female

DRUGS (36)
  1. OLANZAPINE [Suspect]
     Active Substance: OLANZAPINE
     Indication: Parkinson^s disease psychosis
     Dosage: 15 MILLIGRAM, ONCE A DAY
     Route: 065
  2. OLANZAPINE [Suspect]
     Active Substance: OLANZAPINE
     Dosage: 2.5 MILLIGRAM, ONCE A DAY
     Route: 065
  3. OLANZAPINE [Suspect]
     Active Substance: OLANZAPINE
     Dosage: 10 MILLIGRAM, ONCE A DAY
     Route: 065
  4. BENSERAZIDE [Suspect]
     Active Substance: BENSERAZIDE
     Indication: Parkinson^s disease
     Dosage: 100 MILLIGRAM, ONCE A DAY
     Route: 065
  5. BENSERAZIDE [Suspect]
     Active Substance: BENSERAZIDE
     Dosage: 50 MILLIGRAM, ONCE A DAY
     Route: 065
  6. BENSERAZIDE [Suspect]
     Active Substance: BENSERAZIDE
     Dosage: 25 MILLIGRAM, ONCE A DAY
     Route: 065
  7. BENSERAZIDE [Suspect]
     Active Substance: BENSERAZIDE
     Dosage: 25 MILLIGRAM, ONCE A DAY
     Route: 065
     Dates: start: 20220324
  8. BENSERAZIDE [Suspect]
     Active Substance: BENSERAZIDE
     Indication: Parkinson^s disease
     Dosage: 25 MILLIGRAM, ONCE A DAY(25 MILLIGRAM, QD, FIVE TIMES A DAY)
     Route: 048
  9. BENSERAZIDE [Suspect]
     Active Substance: BENSERAZIDE
     Dosage: 100 MILLIGRAM, ONCE A DAY
     Route: 048
  10. BROMAZEPAM [Suspect]
     Active Substance: BROMAZEPAM
     Indication: Parkinson^s disease psychosis
     Dosage: 6 MILLIGRAM, ONCE A DAY
     Route: 065
     Dates: start: 20220324
  11. BROMAZEPAM [Suspect]
     Active Substance: BROMAZEPAM
     Indication: Prophylaxis
  12. CLOZAPINE [Suspect]
     Active Substance: CLOZAPINE
     Indication: Parkinson^s disease psychosis
     Dosage: 150 MILLIGRAM, ONCE A DAY
     Route: 065
  13. CLOZAPINE [Suspect]
     Active Substance: CLOZAPINE
     Indication: Prophylaxis
     Dosage: 25 MILLIGRAM, ONCE A DAY
     Route: 065
  14. DIAZEPAM [Suspect]
     Active Substance: DIAZEPAM
     Indication: Parkinson^s disease psychosis
     Dosage: 10 MILLIGRAM, ONCE A DAY
     Route: 065
  15. DIAZEPAM [Suspect]
     Active Substance: DIAZEPAM
     Indication: Anxiety
     Dosage: 10 MILLIGRAM, ONCE A DAY
     Route: 065
  16. DIAZEPAM [Suspect]
     Active Substance: DIAZEPAM
     Indication: Tension
  17. LEVODOPA [Suspect]
     Active Substance: LEVODOPA
     Indication: Parkinson^s disease
     Dosage: 400 MILLIGRAM, ONCE A DAY
     Route: 065
  18. LEVODOPA [Suspect]
     Active Substance: LEVODOPA
     Dosage: 100 MILLIGRAM, ONCE A DAY
     Route: 065
  19. LEVODOPA [Suspect]
     Active Substance: LEVODOPA
     Dosage: 200 MILLIGRAM, ONCE A DAY
     Route: 065
     Dates: start: 20200717
  20. LEVODOPA [Suspect]
     Active Substance: LEVODOPA
     Dosage: 100 MILLIGRAM, ONCE A DAY
     Route: 065
  21. LEVODOPA [Suspect]
     Active Substance: LEVODOPA
     Indication: Parkinson^s disease
     Dosage: 100 MILLIGRAM, ONCE A DAY
     Route: 065
  22. MIRTAZAPINE [Suspect]
     Active Substance: MIRTAZAPINE
     Indication: Parkinson^s disease psychosis
     Dosage: 30 MILLIGRAM, ONCE A DAY
     Route: 065
  23. MIRTAZAPINE [Suspect]
     Active Substance: MIRTAZAPINE
     Indication: Prophylaxis
     Dosage: 30 MILLIGRAM, ONCE A DAY
     Route: 065
  24. MIRTAZAPINE [Suspect]
     Active Substance: MIRTAZAPINE
     Dosage: 15 MILLIGRAM, ONCE A DAY
     Route: 065
  25. QUETIAPINE [Suspect]
     Active Substance: QUETIAPINE
     Indication: Parkinson^s disease psychosis
     Dosage: 450 MILLIGRAM, ONCE A DAY
     Route: 065
  26. QUETIAPINE [Suspect]
     Active Substance: QUETIAPINE
     Indication: Depression
     Dosage: 25 MILLIGRAM, ONCE A DAY
     Route: 065
  27. QUETIAPINE [Suspect]
     Active Substance: QUETIAPINE
     Dosage: 25 MILLIGRAM, ONCE A DAY
     Route: 065
     Dates: start: 20220324
  28. ROPINIROLE [Suspect]
     Active Substance: ROPINIROLE
     Indication: Parkinson^s disease
     Dosage: 8 MILLIGRAM, ONCE A DAY
     Route: 065
  29. ROPINIROLE [Suspect]
     Active Substance: ROPINIROLE
     Dosage: 8 MILLIGRAM, ONCE A DAY
     Route: 065
  30. ROPINIROLE [Suspect]
     Active Substance: ROPINIROLE
     Dosage: 12 MILLIGRAM, ONCE A DAY
     Route: 065
  31. ROPINIROLE [Suspect]
     Active Substance: ROPINIROLE
     Dosage: 4 MILLIGRAM, ONCE A DAY
     Route: 065
  32. ROPINIROLE [Suspect]
     Active Substance: ROPINIROLE
     Dosage: 2 MILLIGRAM, EVERY WEEK
     Route: 065
  33. ROPINIROLE [Suspect]
     Active Substance: ROPINIROLE
     Dosage: 20 MILLIGRAM, ONCE A DAY
     Route: 065
  34. SERTRALINE [Suspect]
     Active Substance: SERTRALINE HYDROCHLORIDE
     Indication: Depression
     Dosage: 150 MILLIGRAM, ONCE A DAY
     Route: 065
  35. SERTRALINE [Suspect]
     Active Substance: SERTRALINE HYDROCHLORIDE
     Dosage: 125 MILLIGRAM, ONCE A DAY
     Route: 065
  36. TRIHEXYPHENIDYL [Suspect]
     Active Substance: TRIHEXYPHENIDYL
     Indication: Prophylaxis
     Dosage: 4 MILLIGRAM, ONCE A DAY
     Route: 065

REACTIONS (7)
  - Hypotension [Unknown]
  - Mental disorder [Not Recovered/Not Resolved]
  - Overdose [Unknown]
  - Off label use [Unknown]
  - Intentional product misuse [Unknown]
  - Product use issue [Unknown]
  - Drug ineffective for unapproved indication [Unknown]
